FAERS Safety Report 22287734 (Version 1)
Quarter: 2023Q2

REPORT INFORMATION
  Report Type: Report from Study
  Country: JP (occurrence: JP)
  Receive Date: 20230505
  Receipt Date: 20230505
  Transmission Date: 20230722
  Serious: Yes (Other)
  Sender: FDA-Public Use
  Company Number: JP-MYLANLABS-2023M1046812

PATIENT

DRUGS (2)
  1. CARBOPLATIN [Suspect]
     Active Substance: CARBOPLATIN
     Indication: Thymic carcinoma
     Dosage: MONTHLY, A FIRST-LINE CHEMOTHERAPY; AT AN AREA UNDER THE CONCENTRATION-TIME CURVE OF 6.0 ON DAY 1
     Route: 065
  2. PACLITAXEL [Suspect]
     Active Substance: PACLITAXEL
     Indication: Thymic carcinoma
     Dosage: 100 MILLIGRAM/SQ. METER, MONTHLY, A FIRST-LINE CHEMOTHERAPY; ON DAYS 1, 8, AND 15. INFUSION
     Route: 042

REACTIONS (2)
  - Disease progression [Unknown]
  - Drug ineffective [Unknown]
